FAERS Safety Report 6959274-5 (Version None)
Quarter: 2010Q3

REPORT INFORMATION
  Report Type: 
  Country: None (occurrence: None)
  Receive Date: 20100831
  Receipt Date: 20100826
  Transmission Date: 20110219
  Serious: No
  Sender: FDA-Public Use
  Company Number: US-PFIZER INC-2010108460

PATIENT
  Sex: Male
  Weight: 90.703 kg

DRUGS (3)
  1. VIAGRA [Suspect]
     Indication: BLOOD PRESSURE ABNORMAL
     Dosage: 100 MG, AS NEEDED
     Route: 048
     Dates: start: 20080101
  2. VIAGRA [Suspect]
     Indication: ERECTILE DYSFUNCTION
  3. AMLODIPINE [Concomitant]
     Indication: HYPERTENSION
     Dosage: 10 MG, 1X/DAY

REACTIONS (1)
  - DRUG INEFFECTIVE [None]
